FAERS Safety Report 15981704 (Version 1)
Quarter: 2019Q1

REPORT INFORMATION
  Report Type: Spontaneous
  Country: US (occurrence: US)
  Receive Date: 20190219
  Receipt Date: 20190219
  Transmission Date: 20190418
  Serious: Yes (Other)
  Sender: FDA-Public Use
  Company Number: None

PATIENT
  Age: 71 Year
  Sex: Female
  Weight: 58.95 kg

DRUGS (11)
  1. AMLODIPINE BESYLATE. [Concomitant]
     Active Substance: AMLODIPINE BESYLATE
  2. LETROZOLE. [Concomitant]
     Active Substance: LETROZOLE
  3. ONDANSETRON [Concomitant]
     Active Substance: ONDANSETRON
  4. OMEPRAZOLE. [Concomitant]
     Active Substance: OMEPRAZOLE
  5. FLECAINIDE ACETATE. [Concomitant]
     Active Substance: FLECAINIDE ACETATE
  6. LOPERAMIDE [Concomitant]
     Active Substance: LOPERAMIDE
  7. IBRANCE [Suspect]
     Active Substance: PALBOCICLIB
     Indication: BREAST CANCER
     Route: 048
     Dates: start: 20181205
  8. LOSARTAN POTASSIUM. [Concomitant]
     Active Substance: LOSARTAN POTASSIUM
  9. METOPROLOL TARTRATE. [Concomitant]
     Active Substance: METOPROLOL TARTRATE
  10. ELIQUIS [Concomitant]
     Active Substance: APIXABAN
  11. ONE DAILY FOR WOMEN 50+ ADV [Concomitant]

REACTIONS (1)
  - Disease progression [None]
